APPROVED DRUG PRODUCT: MOMETASONE FUROATE
Active Ingredient: MOMETASONE FUROATE
Strength: 0.05MG/SPRAY
Dosage Form/Route: SPRAY, METERED;NASAL
Application: A217498 | Product #001
Applicant: AUROBINDO PHARMA LTD
Approved: Nov 22, 2024 | RLD: No | RS: No | Type: DISCN